FAERS Safety Report 25496089 (Version 1)
Quarter: 2025Q2

REPORT INFORMATION
  Report Type: Spontaneous
  Country: FR (occurrence: FR)
  Receive Date: 20250630
  Receipt Date: 20250630
  Transmission Date: 20250717
  Serious: Yes (Life-Threatening, Other)
  Sender: PFIZER
  Company Number: FR-PFIZER INC-PV202500075728

PATIENT
  Age: 46 Year
  Sex: Male

DRUGS (2)
  1. METHYLPREDNISOLONE SODIUM SUCCINATE [Suspect]
     Active Substance: METHYLPREDNISOLONE SODIUM SUCCINATE
     Indication: Haemolytic anaemia
     Dosage: 2 MG/KG, DAILY
  2. METHYLPREDNISOLONE SODIUM SUCCINATE [Suspect]
     Active Substance: METHYLPREDNISOLONE SODIUM SUCCINATE
     Indication: Glomerulonephritis membranous
     Dosage: 5 MG/KG, DAILY

REACTIONS (2)
  - Drug ineffective [Unknown]
  - Steroid diabetes [Unknown]
